FAERS Safety Report 17524243 (Version 3)
Quarter: 2021Q3

REPORT INFORMATION
  Report Type: Report from Study
  Country: DE (occurrence: DE)
  Receive Date: 20200310
  Receipt Date: 20210819
  Transmission Date: 20211014
  Serious: Yes (Hospitalization, Other)
  Sender: FDA-Public Use
  Company Number: DE-MYLANLABS-2020M1025421

PATIENT
  Age: 70 Year
  Sex: Male
  Weight: 80.7 kg

DRUGS (15)
  1. SILDENAFIL. [Suspect]
     Active Substance: SILDENAFIL
     Indication: PRODUCT USED FOR UNKNOWN INDICATION
     Dosage: 60 MILLIGRAM, QD
     Route: 065
  2. ALENDRONIC ACID [Concomitant]
     Active Substance: ALENDRONIC ACID
     Dosage: 70 MILLIGRAM, QW
     Route: 065
  3. PANTOPRAZOL                        /01263201/ [Concomitant]
     Active Substance: PANTOPRAZOLE
     Dosage: 40 MILLIGRAM, QD (1?0?0)
     Route: 065
  4. PIRFENIDONE. [Suspect]
     Active Substance: PIRFENIDONE
     Dosage: 2403 MILLIGRAM, QD
     Route: 048
     Dates: start: 20180109
  5. CANDECOR [Concomitant]
     Active Substance: CANDESARTAN CILEXETIL
     Dosage: 8 MILLIGRAM, QD
     Route: 065
  6. PIRFENIDONE. [Suspect]
     Active Substance: PIRFENIDONE
     Indication: IDIOPATHIC PULMONARY FIBROSIS
     Dosage: 2403 MILLIGRAM, QD
     Route: 048
     Dates: start: 20151219
  7. CORTISONE [Concomitant]
     Active Substance: CORTISONE
     Dosage: 100 MILLIGRAM, QD
     Route: 065
  8. TORASEMID [Concomitant]
     Active Substance: TORSEMIDE
     Dosage: 10 MILLIGRAM, QD, (1?0?0)
  9. CORTISONE [Concomitant]
     Active Substance: CORTISONE
     Dosage: 8 MILLIGRAM, QD
     Route: 065
  10. ESBRIET [Suspect]
     Active Substance: PIRFENIDONE
     Indication: IDIOPATHIC PULMONARY FIBROSIS
     Dosage: 801 MILLIGRAM 0.33 DAY
     Route: 048
     Dates: start: 20151219
  11. L?THYROXIN                         /00068001/ [Concomitant]
     Active Substance: LEVOTHYROXINE
     Dosage: 125 MICROGRAM, QD, (1?0?0)
  12. CALCIMAGON D3 [Concomitant]
     Active Substance: CALCIUM\CHOLECALCIFEROL
     Dosage: UNK
  13. SILDENAFIL. [Suspect]
     Active Substance: SILDENAFIL
     Dosage: 20 MILLIGRAM 0.33 DAY
     Route: 065
  14. ESBRIET [Suspect]
     Active Substance: PIRFENIDONE
     Dosage: 801 MILLIGRAM, 0.33 DAY
     Route: 048
     Dates: start: 20180109
  15. HCTZ [Concomitant]
     Active Substance: HYDROCHLOROTHIAZIDE
     Dosage: 25 MILLIGRAM, QD, (1?0? 0)

REACTIONS (36)
  - Loss of consciousness [Recovered/Resolved]
  - Cough [Recovering/Resolving]
  - Oral discomfort [Not Recovered/Not Resolved]
  - Diarrhoea [Recovered/Resolved]
  - Hypotension [Recovered/Resolved]
  - Nausea [Recovering/Resolving]
  - Fall [Unknown]
  - Infection [Recovered/Resolved]
  - C-reactive protein increased [Recovered/Resolved]
  - Lip swelling [Unknown]
  - Myalgia [Not Recovered/Not Resolved]
  - Dyspepsia [Recovering/Resolving]
  - Arthralgia [Not Recovered/Not Resolved]
  - Dyspnoea [Not Recovered/Not Resolved]
  - Fatigue [Not Recovered/Not Resolved]
  - Pulmonary hypertension [Unknown]
  - Pyrexia [Recovered/Resolved]
  - Skin cancer [Unknown]
  - Respiratory tract infection [Recovered/Resolved]
  - Gastric infection [Recovered/Resolved]
  - Back pain [Not Recovered/Not Resolved]
  - Exfoliative rash [Not Recovered/Not Resolved]
  - Pain in extremity [Recovered/Resolved]
  - Chills [Recovered/Resolved]
  - Tension [Not Recovered/Not Resolved]
  - Tooth fracture [Recovered/Resolved]
  - Seasonal allergy [Not Recovered/Not Resolved]
  - Dizziness [Not Recovered/Not Resolved]
  - Ageusia [Not Recovered/Not Resolved]
  - Pruritus [Not Recovered/Not Resolved]
  - Malaise [Recovering/Resolving]
  - Thoracic vertebral fracture [Recovered/Resolved]
  - Arthralgia [Recovered/Resolved]
  - Osteoarthritis [Not Recovered/Not Resolved]
  - Cognitive disorder [Not Recovered/Not Resolved]
  - Skin exfoliation [Not Recovered/Not Resolved]

NARRATIVE: CASE EVENT DATE: 20151219
